FAERS Safety Report 15080943 (Version 1)
Quarter: 2018Q2

REPORT INFORMATION
  Report Type: Report from Study
  Country: BR (occurrence: BR)
  Receive Date: 20180628
  Receipt Date: 20180628
  Transmission Date: 20180711
  Serious: Yes (Other)
  Sender: FDA-Public Use
  Company Number: BR-ROCHE-2138004

PATIENT
  Age: 54 Year
  Sex: Female

DRUGS (3)
  1. TELAPREVIR [Suspect]
     Active Substance: TELAPREVIR
     Indication: HEPATITIS C
     Dosage: (2 TABLETS OF 375MG) EVERY 8 HOURS.
     Route: 065
  2. RIBAVIRIN. [Suspect]
     Active Substance: RIBAVIRIN
     Indication: HEPATITIS C
     Dosage: 1,000 OR 1,250MG DAILY, FOR BODY WEIGHT LESS THAN OR GREATER THAN 75 KG RESPECTIVELY.
     Route: 065
  3. PEG-INTERFERON ALFA 2A [Suspect]
     Active Substance: PEGINTERFERON ALFA-2A
     Indication: HEPATITIS C
     Route: 058

REACTIONS (7)
  - Neutropenia [Unknown]
  - Nausea [Unknown]
  - Anaemia [Unknown]
  - Renal impairment [Unknown]
  - Vomiting [Unknown]
  - Thrombocytopenia [Unknown]
  - Skin reaction [Unknown]
